FAERS Safety Report 10174112 (Version 2)
Quarter: 2014Q3

REPORT INFORMATION
  Report Type: Spontaneous
  Country: US (occurrence: US)
  Receive Date: 20140515
  Receipt Date: 20140902
  Transmission Date: 20150326
  Serious: Yes (Death, Hospitalization, Other)
  Sender: FDA-Public Use
  Company Number: US-GILEAD-2014-0102410

PATIENT
  Age: 72 Year
  Sex: Female

DRUGS (11)
  1. POTASSIUM [Concomitant]
     Active Substance: POTASSIUM
  2. LASIX [Concomitant]
     Active Substance: FUROSEMIDE
  3. NIFEDIPINE. [Concomitant]
     Active Substance: NIFEDIPINE
  4. IRON [Concomitant]
     Active Substance: IRON
  5. FISH OIL [Concomitant]
     Active Substance: FISH OIL
  6. LETAIRIS [Suspect]
     Active Substance: AMBRISENTAN
     Indication: CONNECTIVE TISSUE DISORDER
  7. LISINOPRIL. [Concomitant]
     Active Substance: LISINOPRIL
  8. LETAIRIS [Suspect]
     Active Substance: AMBRISENTAN
     Indication: PULMONARY HYPERTENSION
     Dosage: 10 MG, QD
     Route: 065
     Dates: start: 20080304
  9. COQ10                              /00517201/ [Concomitant]
  10. ASPIRIN. [Concomitant]
     Active Substance: ASPIRIN
  11. ENALAPRIL [Concomitant]
     Active Substance: ENALAPRIL

REACTIONS (2)
  - Asthenia [Not Recovered/Not Resolved]
  - Lung neoplasm malignant [Fatal]
